FAERS Safety Report 4517634-6 (Version None)
Quarter: 2004Q4

REPORT INFORMATION
  Report Type: 
  Country: None (occurrence: None)
  Receive Date: 20041130
  Receipt Date: 20041109
  Transmission Date: 20050328
  Serious: Yes (Other)
  Sender: FDA-Public Use
  Company Number: EWC041141415

PATIENT
  Age: 46 Year
  Sex: Female

DRUGS (3)
  1. OLANZAPINE [Suspect]
     Indication: MAJOR DEPRESSION
     Dosage: 10 MG
  2. PAROXETINE HCL [Concomitant]
     Indication: PSYCHOTIC DISORDER
  3. TEMAZEPAM [Concomitant]

REACTIONS (2)
  - EPILEPSY [None]
  - SHOCK [None]
